FAERS Safety Report 6372394-1 (Version None)
Quarter: 2009Q3

REPORT INFORMATION
  Report Type: 
  Country: None (occurrence: None)
  Receive Date: 20090924
  Receipt Date: 20090706
  Transmission Date: 20100115
  Serious: Yes (Other)
  Sender: FDA-Public Use
  Company Number: US-ASTRAZENECA-2008UW21216

PATIENT
  Age: 47 Year
  Sex: Male
  Weight: 111.1 kg

DRUGS (19)
  1. SEROQUEL [Suspect]
     Indication: PSYCHOTIC DISORDER
     Dosage: 50 MG TO 600 MG
     Route: 048
     Dates: start: 20040831, end: 20040910
  2. SEROQUEL [Suspect]
     Indication: DEPRESSION
     Dosage: 50 MG TO 600 MG
     Route: 048
     Dates: start: 20040831, end: 20040910
  3. SEROQUEL [Suspect]
     Indication: SCHIZOPHRENIA
     Dosage: 50 MG TO 600 MG
     Route: 048
     Dates: start: 20040831, end: 20040910
  4. SEROQUEL [Suspect]
     Indication: ANXIETY
     Dosage: 50 MG TO 600 MG
     Route: 048
     Dates: start: 20040831, end: 20040910
  5. SEROQUEL [Suspect]
     Indication: POST-TRAUMATIC STRESS DISORDER
     Dosage: 50 MG TO 600 MG
     Route: 048
     Dates: start: 20040831, end: 20040910
  6. SEROQUEL [Suspect]
     Indication: MENTAL DISORDER
     Dosage: 50 MG TO 600 MG
     Route: 048
     Dates: start: 20040831, end: 20040910
  7. ABILIFY [Concomitant]
     Dates: start: 20000101, end: 20041001
  8. HALDOL [Concomitant]
  9. NAVANE [Concomitant]
  10. RISPERDAL [Concomitant]
     Dates: start: 19960101
  11. THORAZINE [Concomitant]
  12. TRILAFON [Concomitant]
  13. ZYPREXA [Concomitant]
  14. DIVALPROEX SODIUM [Concomitant]
     Dates: start: 20020202, end: 20041006
  15. BUPROPIN [Concomitant]
     Dates: start: 20040912
  16. LITHIUM [Concomitant]
     Dates: start: 20040920, end: 20040921
  17. MIRTAZAPINE [Concomitant]
     Dosage: 30 MG TO 45 MG
     Dates: start: 20020202
  18. TRAZODONE [Concomitant]
     Dates: start: 20040921, end: 20041028
  19. ATIVAN [Concomitant]
     Dates: start: 20040826, end: 20040912

REACTIONS (4)
  - ADVERSE DRUG REACTION [None]
  - DIABETES MELLITUS [None]
  - NEUROLEPTIC MALIGNANT SYNDROME [None]
  - TARDIVE DYSKINESIA [None]
